FAERS Safety Report 8510724-2 (Version None)
Quarter: 2012Q3

REPORT INFORMATION
  Report Type: 
  Country: None (occurrence: None)
  Receive Date: 20120716
  Receipt Date: 20120712
  Transmission Date: 20120928
  Serious: No
  Sender: FDA-Public Use
  Company Number: US-PFIZER INC-2012169674

PATIENT
  Sex: Female

DRUGS (6)
  1. XANAX [Suspect]
     Indication: GENERALISED ANXIETY DISORDER
     Dosage: SPLITTING THE 2MG TABLET, UNK
  2. ALPRAZOLAM [Suspect]
     Indication: PANIC ATTACK
     Dosage: 3 MG, DAILY
     Route: 048
  3. PRISTIQ [Concomitant]
     Dosage: 100 MG, DAILY
  4. ALPRAZOLAM [Suspect]
     Indication: GENERALISED ANXIETY DISORDER
  5. CYMBALTA [Concomitant]
     Dosage: 40 MG, DAILY
  6. XANAX [Suspect]
     Indication: PANIC ATTACK
     Dosage: UNK

REACTIONS (2)
  - DRUG INEFFECTIVE [None]
  - THERAPEUTIC RESPONSE UNEXPECTED [None]
